FAERS Safety Report 9506270 (Version 1)
Quarter: 2013Q1

REPORT INFORMATION
  Report Type: Spontaneous
  Country: US (occurrence: None)
  Receive Date: 20130305
  Receipt Date: 20130305
  Transmission Date: 20140127
  Serious: Yes (Other)
  Sender: FDA-Public Use
  Company Number: 163-21880-12050210

PATIENT
  Age: 69 Year
  Sex: Male
  Weight: 66.68 kg

DRUGS (5)
  1. REVLIMID (LENALIDOMIDE) (CAPSULES) [Suspect]
     Indication: PLASMA CELL MYELOMA
     Dosage: 25 MG, 14 IN 14 D, PO
     Route: 048
     Dates: start: 201110
  2. VITAMIN B-12 (CYANOCOBALAMIN) [Concomitant]
  3. VITAMINS [Concomitant]
  4. VITAMIN A (RETINOL) [Concomitant]
  5. CHEMOTHERAPY MEDICATION (CHEMOTHERAPEUTICS) [Concomitant]

REACTIONS (1)
  - Neuropathy peripheral [None]
